FAERS Safety Report 20524848 (Version 9)
Quarter: 2022Q4

REPORT INFORMATION
  Report Type: Spontaneous
  Country: US (occurrence: US)
  Receive Date: 20220228
  Receipt Date: 20221118
  Transmission Date: 20230112
  Serious: No
  Sender: FDA-Public Use
  Company Number: US-DSJP-DSU-2022-106685AA

PATIENT
  Sex: Male

DRUGS (2)
  1. TURALIO [Suspect]
     Active Substance: PEXIDARTINIB HYDROCHLORIDE
     Indication: Connective tissue neoplasm
     Dosage: 400 MG, BID
     Route: 048
     Dates: start: 20220216
  2. TURALIO [Suspect]
     Active Substance: PEXIDARTINIB HYDROCHLORIDE
     Indication: Soft tissue neoplasm

REACTIONS (17)
  - Pain [Unknown]
  - Aphonia [Unknown]
  - Anxiety [Recovered/Resolved]
  - Myalgia [Recovered/Resolved]
  - Inflammation [Recovered/Resolved]
  - Eyelash discolouration [Not Recovered/Not Resolved]
  - Hair colour changes [Not Recovered/Not Resolved]
  - Incorrect dose administered [Unknown]
  - Depression [Unknown]
  - Product dose omission issue [Unknown]
  - Skin discolouration [Not Recovered/Not Resolved]
  - Hair colour changes [Not Recovered/Not Resolved]
  - Photosensitivity reaction [Unknown]
  - Erythema [Not Recovered/Not Resolved]
  - Cyst [Recovered/Resolved]
  - Paraesthesia [Recovered/Resolved]
  - Rash erythematous [Recovered/Resolved]

NARRATIVE: CASE EVENT DATE: 20220101
